FAERS Safety Report 5942808-7 (Version None)
Quarter: 2008Q4

REPORT INFORMATION
  Report Type: 
  Country: None (occurrence: None)
  Receive Date: 20081106
  Receipt Date: 20081103
  Transmission Date: 20090506
  Serious: Yes (Other)
  Sender: FDA-Public Use
  Company Number: US-ASTRAZENECA-2008UW24508

PATIENT
  Sex: Female

DRUGS (2)
  1. SYMBICORT [Suspect]
     Indication: PNEUMONITIS
     Dosage: 160/4.5 UG  2 PUFFS BID
     Route: 055
     Dates: start: 20080601
  2. SYMBICORT [Suspect]
     Dosage: 160/4.5 UG  2 PUFFS DAILY
     Route: 055
     Dates: start: 20080701

REACTIONS (2)
  - MACULAR DEGENERATION [None]
  - RETINAL HAEMORRHAGE [None]
